FAERS Safety Report 6475649-5 (Version None)
Quarter: 2009Q4

REPORT INFORMATION
  Report Type: 
  Country: None (occurrence: None)
  Receive Date: 20091204
  Receipt Date: 20091125
  Transmission Date: 20100525
  Serious: Yes (Death)
  Sender: FDA-Public Use
  Company Number: US-BRISTOL-MYERS SQUIBB COMPANY-14871800

PATIENT
  Age: 54 Year
  Sex: Female

DRUGS (12)
  1. CETUXIMAB [Suspect]
     Indication: NON-SMALL CELL LUNG CANCER
     Dosage: 423MG
     Route: 042
     Dates: start: 20090914, end: 20091116
  2. CISPLATIN [Suspect]
     Indication: NON-SMALL CELL LUNG CANCER
     Route: 042
     Dates: start: 20090914, end: 20091116
  3. GEMCITABINE [Suspect]
     Indication: NON-SMALL CELL LUNG CANCER
     Dosage: DAY 1 AND 8
     Route: 042
     Dates: start: 20090914, end: 20091116
  4. EMEND [Concomitant]
     Indication: PROPHYLAXIS
     Dosage: DAYS 1 + 2 PAST CHEMO
     Route: 048
  5. DOXYCYCLINE [Concomitant]
     Route: 048
  6. DECADRON [Concomitant]
     Route: 048
  7. ATIVAN [Concomitant]
     Indication: NAUSEA
     Dosage: 0.5 MG PRN
     Route: 048
  8. ATIVAN [Concomitant]
     Indication: VOMITING
     Dosage: 0.5 MG PRN
     Route: 048
  9. ZOFRAN [Concomitant]
     Indication: NAUSEA
     Dosage: 8MG PRN
     Route: 048
  10. ZOFRAN [Concomitant]
     Indication: VOMITING
     Dosage: 8MG PRN
     Route: 048
  11. KEPPRA [Concomitant]
     Route: 048
  12. PAXIL [Concomitant]
     Route: 048

REACTIONS (1)
  - CARDIO-RESPIRATORY ARREST [None]
